FAERS Safety Report 21713525 (Version 1)
Quarter: 2022Q4

REPORT INFORMATION
  Report Type: Spontaneous
  Country: US (occurrence: None)
  Receive Date: 20221208
  Receipt Date: 20221208
  Transmission Date: 20230113
  Serious: Yes (Hospitalization)
  Sender: FDA-Public Use
  Company Number: None

PATIENT
  Age: 78 Year
  Sex: Male
  Weight: 102 kg

DRUGS (1)
  1. IPRATROPIUM BROMIDE [Suspect]
     Active Substance: IPRATROPIUM BROMIDE
     Indication: Chronic obstructive pulmonary disease
     Dosage: FREQUENCY : AS DIRECTED;?
     Route: 055
     Dates: start: 20220823, end: 20220823

REACTIONS (3)
  - Pulmonary embolism [None]
  - Respiratory distress [None]
  - Bronchospasm [None]

NARRATIVE: CASE EVENT DATE: 20220823
